FAERS Safety Report 8237781-5 (Version None)
Quarter: 2012Q1

REPORT INFORMATION
  Report Type: 
  Country: None (occurrence: None)
  Receive Date: 20120326
  Receipt Date: 20120312
  Transmission Date: 20120608
  Serious: Yes (Hospitalization, Disabling, Other)
  Sender: FDA-Public Use
  Company Number: 2008AL011229

PATIENT
  Age: 78 Year
  Sex: Female
  Weight: 63.5036 kg

DRUGS (65)
  1. PROCHLORPERAZINE [Concomitant]
  2. TENORETIC 100 [Concomitant]
  3. BENAZEPRIL HYDROCHLORIDE [Concomitant]
  4. CELESTONE [Concomitant]
  5. ATIVAN [Concomitant]
  6. ALDACTONE [Concomitant]
  7. PREMARIN [Concomitant]
  8. LORAZEPAM [Concomitant]
  9. AMOXICILLIN AND CLAVULANATE POTASSIUM [Concomitant]
  10. ESTROGEN [Concomitant]
  11. WARFARIN SODIUM [Concomitant]
  12. LOVENOX [Concomitant]
  13. XANAX [Concomitant]
  14. LISINOPRIL [Concomitant]
  15. COUMADIN [Concomitant]
  16. ATENOLOL [Concomitant]
  17. ALPRAZOLAM [Concomitant]
  18. POTASSIUM [Concomitant]
  19. FELDENE [Concomitant]
  20. HYTRIN [Concomitant]
  21. ATROHIST [Concomitant]
  22. HYDROCHLOROTHIAZIDE [Concomitant]
  23. DIGOXIN [Suspect]
     Indication: PRODUCT USED FOR UNKNOWN INDICATION
     Dosage: 0.125 MG;QD;PO
     Route: 048
     Dates: start: 20080325, end: 20090626
  24. ALLOPURINOL [Concomitant]
  25. CLONIDINE [Concomitant]
  26. HYTRIL [Concomitant]
  27. PRAVACHOL [Concomitant]
  28. PRAVASTATIN [Concomitant]
  29. SPIRONOLACTONE [Concomitant]
  30. PANTOPRAZOLE [Concomitant]
  31. DURAHIST [Concomitant]
  32. AZITHROMYCIN [Concomitant]
  33. CEPHALEXIN [Concomitant]
  34. PHENAZOPYRIDINE HCL TAB [Concomitant]
  35. NITROFURANTOIN [Concomitant]
  36. TERAZOSIN HCL [Concomitant]
  37. DARVOCET-N 100 [Concomitant]
  38. VASOTEC [Concomitant]
  39. MICRO-K [Concomitant]
  40. LIBRIUM [Concomitant]
  41. RELAFEN [Concomitant]
  42. PROTONIX [Concomitant]
  43. MAGNESIUM [Concomitant]
  44. PREMARIN [Concomitant]
  45. METOPROLOL SUCCINATE [Concomitant]
  46. BACTRIM [Concomitant]
  47. DECADRON [Concomitant]
  48. CATAPRES [Concomitant]
  49. ZESTRIL [Concomitant]
  50. OMACOR [Concomitant]
  51. ZYLOPRIM [Concomitant]
  52. LOVAZA [Concomitant]
  53. OMACOR [Concomitant]
  54. PLAVIX [Concomitant]
  55. PHENAZOPYRIDINE HCL TAB [Concomitant]
  56. PRAZOLARA [Concomitant]
  57. PROZAC [Concomitant]
  58. ZITHROMAX [Concomitant]
  59. AMIODARONE HCL [Concomitant]
  60. NITROGLYCERIN [Concomitant]
  61. ACYCLOVIR [Concomitant]
  62. NIASPAN [Concomitant]
  63. ENALAPRIL [Concomitant]
  64. KENALOG [Concomitant]
  65. FOSAMAX [Concomitant]

REACTIONS (77)
  - SINUSITIS [None]
  - DERMATITIS [None]
  - RASH PRURITIC [None]
  - MICTURITION URGENCY [None]
  - UPPER RESPIRATORY TRACT CONGESTION [None]
  - NERVOUSNESS [None]
  - BLOOD TRIGLYCERIDES INCREASED [None]
  - AORTIC VALVE INCOMPETENCE [None]
  - ANXIETY [None]
  - ANHEDONIA [None]
  - INTERVERTEBRAL DISC DISORDER [None]
  - ABSCESS ORAL [None]
  - MOVEMENT DISORDER [None]
  - HAEMANGIOMA [None]
  - HEAD INJURY [None]
  - ATRIOVENTRICULAR BLOCK FIRST DEGREE [None]
  - MITRAL VALVE STENOSIS [None]
  - CONDITION AGGRAVATED [None]
  - ATRIAL FIBRILLATION [None]
  - CARDIAC FAILURE CONGESTIVE [None]
  - SINUS BRADYCARDIA [None]
  - GOUT [None]
  - ARTERIOSCLEROSIS [None]
  - CARDIAC MURMUR [None]
  - POLLAKIURIA [None]
  - CONTUSION [None]
  - MUSCULOSKELETAL STIFFNESS [None]
  - UPPER RESPIRATORY TRACT INFECTION [None]
  - PAIN [None]
  - HYPONATRAEMIA [None]
  - ABDOMINAL DISCOMFORT [None]
  - HOT FLUSH [None]
  - PARAESTHESIA [None]
  - FALL [None]
  - OSTEOPENIA [None]
  - BLOOD CHOLESTEROL INCREASED [None]
  - QUALITY OF LIFE DECREASED [None]
  - OVERDOSE [None]
  - VISUAL ACUITY REDUCED [None]
  - HYPOTHYROIDISM [None]
  - OROPHARYNGEAL PAIN [None]
  - SKIN EXFOLIATION [None]
  - KYPHOSIS [None]
  - TRICUSPID VALVE INCOMPETENCE [None]
  - CARDIOVASCULAR DISORDER [None]
  - AORTIC STENOSIS [None]
  - MUSCLE SPASMS [None]
  - URINARY TRACT INFECTION [None]
  - MENOPAUSAL SYMPTOMS [None]
  - NOCTURIA [None]
  - APHASIA [None]
  - DRY MOUTH [None]
  - DRY EYE [None]
  - DYSURIA [None]
  - BREAST CYST [None]
  - TENDONITIS [None]
  - MITRAL VALVE INCOMPETENCE [None]
  - MULTIPLE INJURIES [None]
  - ECONOMIC PROBLEM [None]
  - TOXICITY TO VARIOUS AGENTS [None]
  - PRESYNCOPE [None]
  - OSTEOARTHRITIS [None]
  - HEADACHE [None]
  - HYPERCHOLESTEROLAEMIA [None]
  - EYE DISORDER [None]
  - INSOMNIA [None]
  - ECCHYMOSIS [None]
  - STRESS [None]
  - MYOCARDIAL ISCHAEMIA [None]
  - HYPERTENSION [None]
  - ATOPY [None]
  - PAIN IN EXTREMITY [None]
  - RETINAL DETACHMENT [None]
  - PHOTOPHOBIA [None]
  - VISION BLURRED [None]
  - DYSPEPSIA [None]
  - GASTROOESOPHAGEAL REFLUX DISEASE [None]
